FAERS Safety Report 24990678 (Version 1)
Quarter: 2025Q1

REPORT INFORMATION
  Report Type: Spontaneous
  Country: JP (occurrence: JP)
  Receive Date: 20250220
  Receipt Date: 20250220
  Transmission Date: 20250409
  Serious: Yes (Other)
  Sender: ELI LILLY AND COMPANY
  Company Number: JP-ELI_LILLY_AND_COMPANY-JP202502010939

PATIENT
  Age: 25 Year
  Sex: Female
  Weight: 57 kg

DRUGS (3)
  1. MOUNJARO [Suspect]
     Active Substance: TIRZEPATIDE
     Indication: Weight decreased
     Route: 065
  2. MOUNJARO [Suspect]
     Active Substance: TIRZEPATIDE
     Dosage: 5 MG, WEEKLY (1/W)
     Route: 058
     Dates: end: 20250209
  3. DAPAGLIFLOZIN [Suspect]
     Active Substance: DAPAGLIFLOZIN
     Indication: Product used for unknown indication
     Dosage: 5 MG, DAILY
     Route: 065
     Dates: end: 20250209

REACTIONS (12)
  - Loss of consciousness [Recovered/Resolved]
  - Palpitations [Recovered/Resolved]
  - Hyponatraemia [Unknown]
  - Hypokalaemia [Unknown]
  - Hypochloraemia [Unknown]
  - Hypoglycaemia [Recovered/Resolved]
  - Weight decreased [Unknown]
  - Off label use [Unknown]
  - Fall [Unknown]
  - Skin abrasion [Unknown]
  - Tachycardia [Unknown]
  - Sinus arrhythmia [Unknown]

NARRATIVE: CASE EVENT DATE: 20250208
